FAERS Safety Report 7920667-0 (Version None)
Quarter: 2011Q4

REPORT INFORMATION
  Report Type: 
  Country: None (occurrence: None)
  Receive Date: 20111117
  Receipt Date: 20111110
  Transmission Date: 20120403
  Serious: Yes (Hospitalization)
  Sender: FDA-Public Use
  Company Number: US-UCBSA-042781

PATIENT
  Age: 20 Year
  Sex: Female
  Weight: 63.8 kg

DRUGS (7)
  1. CERTOLIZUMAB PEGOL [Suspect]
     Indication: CROHN'S DISEASE
     Route: 058
     Dates: start: 20110706
  2. CERTOLIZUMAB PEGOL [Suspect]
     Route: 058
     Dates: start: 20110420, end: 20110619
  3. CERTOLIZUMAB PEGOL [Suspect]
     Route: 058
     Dates: start: 20110104, end: 20110118
  4. QUETIAPINE [Concomitant]
     Indication: DEPRESSION
     Route: 048
  5. MULTI-VITAMIN [Concomitant]
     Dosage: 1 TAB
     Route: 048
  6. METHOTREXATE [Concomitant]
     Indication: CROHN'S DISEASE
     Dates: start: 20100326
  7. CERTOLIZUMAB PEGOL [Suspect]
     Route: 058
     Dates: start: 20110302, end: 20110320

REACTIONS (2)
  - CROHN'S DISEASE [None]
  - ANAL ABSCESS [None]
